FAERS Safety Report 8297813-5 (Version None)
Quarter: 2012Q2

REPORT INFORMATION
  Report Type: 
  Country: None (occurrence: None)
  Receive Date: 20120419
  Receipt Date: 20120414
  Transmission Date: 20120825
  Serious: Yes (Hospitalization, Other)
  Sender: FDA-Public Use
  Company Number: US-BAYER-2011-040663

PATIENT
  Age: 49 Year
  Sex: Female
  Weight: 66 kg

DRUGS (2)
  1. YASMIN [Suspect]
     Indication: CONTRACEPTION
     Dosage: UNK
     Dates: start: 20040901, end: 20051101
  2. RANITIDINE [Concomitant]
     Dosage: 150 MG, UNK
     Route: 048

REACTIONS (10)
  - HEMIPARESIS [None]
  - BALANCE DISORDER [None]
  - FALL [None]
  - INJURY [None]
  - PAIN [None]
  - HIP FRACTURE [None]
  - EMOTIONAL DISTRESS [None]
  - CEREBROVASCULAR ACCIDENT [None]
  - ANXIETY [None]
  - GENERAL PHYSICAL HEALTH DETERIORATION [None]
